FAERS Safety Report 24157470 (Version 1)
Quarter: 2024Q3

REPORT INFORMATION
  Report Type: Spontaneous
  Country: US (occurrence: None)
  Receive Date: 20240731
  Receipt Date: 20240731
  Transmission Date: 20241016
  Serious: No
  Sender: Public
  Company Number: None

PATIENT
  Sex: 0

DRUGS (1)
  1. TERBINAFINE [Suspect]
     Active Substance: TERBINAFINE
     Indication: Onychomycosis
     Dosage: 1 CAPSULE DAILY ORAL
     Route: 048

REACTIONS (2)
  - Chest pain [None]
  - Muscle twitching [None]

NARRATIVE: CASE EVENT DATE: 20240730
